FAERS Safety Report 5192157-2 (Version None)
Quarter: 2006Q4

REPORT INFORMATION
  Report Type: 
  Country: None (occurrence: None)
  Receive Date: 20061227
  Receipt Date: 20061219
  Transmission Date: 20070319
  Serious: Yes (Other)
  Sender: FDA-Public Use
  Company Number: CA-MERCK-0612CAN00133

PATIENT
  Age: 62 Year
  Sex: Male

DRUGS (9)
  1. ZETIA [Suspect]
     Route: 048
  2. WARFARIN [Concomitant]
     Route: 065
  3. ACEBUTOLOL [Concomitant]
     Route: 065
  4. DILTIAZEM HYDROCHLORIDE [Concomitant]
     Route: 065
  5. DILTIAZEM HYDROCHLORIDE [Concomitant]
     Route: 065
  6. PREDNISONE [Concomitant]
     Route: 065
  7. RAMIPRIL [Concomitant]
     Route: 065
  8. INSULIN [Concomitant]
     Route: 065
  9. NITROGLYCERIN [Suspect]
     Route: 065

REACTIONS (1)
  - HALLUCINATION [None]
